FAERS Safety Report 9323517 (Version 1)
Quarter: 2013Q2

REPORT INFORMATION
  Report Type: Spontaneous
  Country: US (occurrence: US)
  Receive Date: 20130603
  Receipt Date: 20130603
  Transmission Date: 20140414
  Serious: No
  Sender: FDA-Public Use
  Company Number: US-PFIZER INC-2013165772

PATIENT
  Age: 60 Year
  Sex: Female

DRUGS (21)
  1. XELJANZ [Suspect]
     Indication: RHEUMATOID ARTHRITIS
     Dosage: 5 MG, 2X/DAY
     Route: 048
     Dates: start: 201304
  2. METHOTREXATE [Concomitant]
     Dosage: UNK
  3. PREDNISONE [Concomitant]
     Dosage: UNK
  4. EXCEDRIN MIGRAINE [Concomitant]
     Dosage: UNK
  5. ULTRAM [Concomitant]
     Dosage: UNK
  6. NEURONTIN [Concomitant]
     Dosage: UNK
  7. MOEXIPRIL [Concomitant]
     Dosage: UNK
  8. HYDROCHLOROTHIAZIDE [Concomitant]
     Dosage: UNK
  9. BUPROPION HYDROCHLORIDE [Concomitant]
     Dosage: UNK
  10. PRAVASTATIN [Concomitant]
     Dosage: UNK
  11. GLIMEPIRIDE [Concomitant]
     Dosage: UNK
  12. TUMS [Concomitant]
     Dosage: UNK
  13. CALCIUM [Concomitant]
     Dosage: UNK
  14. FOLIC ACID [Concomitant]
     Dosage: UNK
  15. FAMOTIDINE [Concomitant]
     Dosage: UNK
  16. BISOPROLOL FUMARATE/HYDROCHLOROTHIAZIDE [Concomitant]
     Dosage: UNK
  17. TYLENOL [Concomitant]
     Dosage: UNK
  18. FLEXERIL [Concomitant]
     Dosage: UNK
  19. IBUPROFEN [Concomitant]
     Dosage: UNK
  20. MAGNESIUM [Concomitant]
     Dosage: UNK
  21. VITAMIN D3 [Concomitant]
     Dosage: UNK

REACTIONS (1)
  - Oral candidiasis [Unknown]
